FAERS Safety Report 9666874 (Version 1)
Quarter: 2013Q4

REPORT INFORMATION
  Report Type: Spontaneous
  Country: US (occurrence: US)
  Receive Date: 20131104
  Receipt Date: 20131104
  Transmission Date: 20140711
  Serious: No
  Sender: FDA-Public Use
  Company Number: US-BIOGENIDEC-2013BI088071

PATIENT
  Age: 39 Year
  Sex: Female

DRUGS (3)
  1. TECFIDERA [Suspect]
     Indication: MULTIPLE SCLEROSIS
     Route: 048
     Dates: start: 20130719, end: 20130801
  2. TECFIDERA [Suspect]
     Indication: MULTIPLE SCLEROSIS
     Route: 048
     Dates: start: 20130802, end: 20130902
  3. TECFIDERA [Suspect]
     Indication: MULTIPLE SCLEROSIS
     Route: 048
     Dates: start: 20130903

REACTIONS (5)
  - Flushing [Recovered/Resolved]
  - Constipation [Recovered/Resolved]
  - Upper respiratory tract infection [Not Recovered/Not Resolved]
  - Ear infection [Not Recovered/Not Resolved]
  - General symptom [Unknown]
